FAERS Safety Report 10064029 (Version 2)
Quarter: 2014Q2

REPORT INFORMATION
  Report Type: Spontaneous
  Country: US (occurrence: US)
  Receive Date: 20140408
  Receipt Date: 20140418
  Transmission Date: 20141212
  Serious: Yes (Hospitalization, Other)
  Sender: FDA-Public Use
  Company Number: US-BRISTOL-MYERS SQUIBB COMPANY-20576120

PATIENT
  Age: 51 Year
  Sex: Male

DRUGS (1)
  1. SPRYCEL [Suspect]
     Indication: CHRONIC MYELOID LEUKAEMIA
     Dates: start: 20140313

REACTIONS (4)
  - Mouth haemorrhage [Unknown]
  - Coagulopathy [Unknown]
  - Tooth extraction [Unknown]
  - Faeces discoloured [Unknown]
